FAERS Safety Report 7132590-2 (Version None)
Quarter: 2010Q4

REPORT INFORMATION
  Report Type: 
  Country: None (occurrence: None)
  Receive Date: 20101202
  Receipt Date: 20101123
  Transmission Date: 20110411
  Serious: Yes (Hospitalization)
  Sender: FDA-Public Use
  Company Number: CA-JNJFOC-20100307161

PATIENT
  Sex: Male

DRUGS (3)
  1. REMICADE [Suspect]
     Indication: CROHN'S DISEASE
     Dosage: 0, 2, 6 WEEKS
     Route: 042
  2. BENADRYL [Concomitant]
     Indication: PREMEDICATION
     Route: 048
  3. GRAVOL TAB [Concomitant]
     Indication: PREMEDICATION
     Route: 048

REACTIONS (3)
  - DEHYDRATION [None]
  - HAEMORRHAGE [None]
  - MALAISE [None]
